FAERS Safety Report 20066381 (Version 1)
Quarter: 2021Q4

REPORT INFORMATION
  Report Type: Spontaneous
  Country: US (occurrence: US)
  Receive Date: 20211115
  Receipt Date: 20211115
  Transmission Date: 20220304
  Serious: No
  Sender: FDA-Public Use
  Company Number: US-TOLMAR, INC.-21US029505

PATIENT
  Sex: Male

DRUGS (1)
  1. ELIGARD [Suspect]
     Active Substance: LEUPROLIDE ACETATE
     Indication: Product used for unknown indication
     Dosage: UNK
     Dates: start: 20210713

REACTIONS (3)
  - Rash [Unknown]
  - Anal rash [Unknown]
  - Dermatitis contact [Unknown]

NARRATIVE: CASE EVENT DATE: 20210101
